FAERS Safety Report 14375860 (Version 2)
Quarter: 2018Q1

REPORT INFORMATION
  Report Type: Spontaneous
  Country: US (occurrence: US)
  Receive Date: 20180111
  Receipt Date: 20180216
  Transmission Date: 20180509
  Serious: No
  Sender: FDA-Public Use
  Company Number: US-PFIZER INC-2018012157

PATIENT
  Age: 64 Year
  Sex: Male

DRUGS (6)
  1. GABAPENTIN. [Suspect]
     Active Substance: GABAPENTIN
     Dosage: 600 MG, DAILY(TAKING A SECOND PILL EVERY FEW DAYS WHEN THE PAIN WAS MORE SEVERE)
  2. GABAPENTIN. [Suspect]
     Active Substance: GABAPENTIN
     Dosage: UNK
     Dates: start: 2016, end: 2017
  3. GABAPENTIN. [Suspect]
     Active Substance: GABAPENTIN
     Indication: NEURALGIA
     Dosage: 2400 MG, UNK  (INCREASED TO X 8 DAY/ EIGHT PILLS)
     Dates: start: 2010
  4. VICODIN [Suspect]
     Active Substance: ACETAMINOPHEN\HYDROCODONE BITARTRATE
     Indication: NEURALGIA
     Dosage: UNK, (1 OR 2 PER MONTH)
  5. GABAPENTIN. [Suspect]
     Active Substance: GABAPENTIN
     Dosage: 1200 MG, DAILY(I WAS TAKING FOUR A DAY)
     Dates: start: 2008
  6. GABAPENTIN. [Suspect]
     Active Substance: GABAPENTIN
     Indication: NEURALGIA
     Dosage: 300 MG, 1X/DAY(300MG PILL PER DAY IN THE EVENING)
     Dates: start: 2004

REACTIONS (1)
  - Drug ineffective for unapproved indication [Unknown]
